FAERS Safety Report 23129647 (Version 2)
Quarter: 2023Q4

REPORT INFORMATION
  Report Type: Spontaneous
  Country: JP (occurrence: JP)
  Receive Date: 20231031
  Receipt Date: 20231213
  Transmission Date: 20240110
  Serious: Yes (Hospitalization)
  Sender: FDA-Public Use
  Company Number: JP-MYOVANT SCIENCES GMBH-2023MYSCI1000896

PATIENT
  Age: 33 Year
  Sex: Female

DRUGS (5)
  1. RELUGOLIX [Suspect]
     Active Substance: RELUGOLIX
     Indication: Anovulatory cycle
     Dosage: 40 MILLIGRAM, QD
     Route: 048
     Dates: start: 20211210, end: 20211217
  2. GONADOTROPHIN, CHORIONIC [Suspect]
     Active Substance: GONADOTROPHIN, CHORIONIC
     Indication: Controlled ovarian stimulation
     Dosage: 150 INTERNATIONAL UNIT, QD
     Route: 030
     Dates: start: 20211206, end: 20211207
  3. GONADOTROPHIN, CHORIONIC [Suspect]
     Active Substance: GONADOTROPHIN, CHORIONIC
     Indication: Infertility
     Dosage: 300 IU INTERNATIONAL UNIT(S), QD
     Route: 030
     Dates: start: 20211208, end: 20211217
  4. GONADOTROPHIN, CHORIONIC [Suspect]
     Active Substance: GONADOTROPHIN, CHORIONIC
     Indication: Controlled ovarian stimulation
     Dosage: 150 IU INTERNATIONAL UNIT(S), QD
     Route: 030
     Dates: start: 20211204, end: 20211205
  5. CHORIONIC GONADOTROPIN [Suspect]
     Active Substance: CHORIOGONADOTROPIN ALFA
     Indication: Blood luteinising hormone abnormal
     Dosage: 5000 UNIT, QD
     Route: 030
     Dates: start: 20211218, end: 20211218

REACTIONS (2)
  - Ovarian hyperstimulation syndrome [Recovered/Resolved]
  - Off label use [Recovered/Resolved]

NARRATIVE: CASE EVENT DATE: 20211222
